FAERS Safety Report 8337157-6 (Version None)
Quarter: 2012Q2

REPORT INFORMATION
  Report Type: 
  Country: None (occurrence: None)
  Receive Date: 20120504
  Receipt Date: 20120425
  Transmission Date: 20120825
  Serious: Yes (Hospitalization)
  Sender: FDA-Public Use
  Company Number: PHHY2012IT035175

PATIENT
  Sex: Male

DRUGS (7)
  1. TASIGNA [Suspect]
     Indication: CHRONIC MYELOID LEUKAEMIA
     Dosage: 600 MG,
     Dates: start: 20120125, end: 20120126
  2. RAMIPRIL [Concomitant]
     Dosage: 5 MG, 2 ORAL POSOLOGIC UNITS
     Route: 048
  3. OMEPRAZOLE [Concomitant]
     Dosage: 20 MG,
     Route: 048
  4. ORAL ANTIDIABETICS [Concomitant]
  5. FUROSEMIDE [Concomitant]
     Dosage: 2 DF,
  6. SINTROM [Concomitant]
     Dosage: 1 MG,
     Route: 048
  7. BISOPROLOL FUMARATE [Concomitant]
     Dosage: 2.5 MG,
     Route: 048

REACTIONS (1)
  - ACUTE MYOCARDIAL INFARCTION [None]
